FAERS Safety Report 11793069 (Version 1)
Quarter: 2015Q4

REPORT INFORMATION
  Report Type: Spontaneous
  Country: JP (occurrence: JP)
  Receive Date: 20151202
  Receipt Date: 20151202
  Transmission Date: 20160305
  Serious: Yes (Hospitalization, Other)
  Sender: FDA-Public Use
  Company Number: JP-ACTAVIS-2015-26154

PATIENT
  Age: 53 Year
  Sex: Female

DRUGS (3)
  1. EPIRUBICIN (UNKNOWN) [Suspect]
     Active Substance: EPIRUBICIN
     Dosage: 100 MG/M2, CYCLICAL, 3 CYCLES, EVERY 3 WEEKS
     Route: 065
  2. FLUOROURACIL. [Suspect]
     Active Substance: FLUOROURACIL
     Indication: BREAST CANCER STAGE I
     Dosage: 500 MG/M2, CYCLICAL, 3 CYCLES, EVERY 3 WEEKS
     Route: 065
  3. CYCLOPHOSPHAMIDE (UNKNOWN) [Suspect]
     Active Substance: CYCLOPHOSPHAMIDE
     Dosage: 500 MG/M2, CYCLICAL, 3 CYCLES, EVERY 3 WEEKS
     Route: 065

REACTIONS (2)
  - Miller Fisher syndrome [Recovering/Resolving]
  - Nausea [Unknown]
